FAERS Safety Report 15571097 (Version 1)
Quarter: 2018Q4

REPORT INFORMATION
  Report Type: Report from Study
  Country: US (occurrence: US)
  Receive Date: 20181031
  Receipt Date: 20181031
  Transmission Date: 20190205
  Serious: No
  Sender: FDA-Public Use
  Company Number: PHEH2018US046041

PATIENT
  Age: 66 Year
  Sex: Male
  Weight: 86.17 kg

DRUGS (1)
  1. ENTRESTO [Suspect]
     Active Substance: SACUBITRIL\VALSARTAN
     Indication: CARDIAC FAILURE
     Dosage: 1 DF (SACUBITRIL 49 MG/ VALSARTAN 51 MG), Q12H
     Route: 048

REACTIONS (1)
  - Stress [Recovering/Resolving]

NARRATIVE: CASE EVENT DATE: 20181002
